FAERS Safety Report 19211895 (Version 1)
Quarter: 2021Q2

REPORT INFORMATION
  Report Type: Spontaneous
  Country: CH (occurrence: CH)
  Receive Date: 20210504
  Receipt Date: 20210504
  Transmission Date: 20210717
  Serious: Yes (Other)
  Sender: FDA-Public Use
  Company Number: CH-PFIZER INC-2021454390

PATIENT
  Age: 73 Year
  Sex: Female
  Weight: 82 kg

DRUGS (18)
  1. QUETIAPINE RETARD EG [Suspect]
     Active Substance: QUETIAPINE FUMARATE
     Indication: BIPOLAR DISORDER
     Dosage: 300 MG, 2X/DAY  (LONG TERM)
     Route: 048
  2. ELTROXIN [Concomitant]
     Active Substance: LEVOTHYROXINE
     Dosage: 50 UG, DAILY
  3. LAMICTAL [Concomitant]
     Active Substance: LAMOTRIGINE
     Dosage: 25 MG, DAILY
  4. TEMESTA (LORAZEPAM) [Suspect]
     Active Substance: LORAZEPAM
     Dosage: 2.5 MG, DAILY (LONG TERM, IN THE EVENING)
     Route: 048
  5. LANTUS [Concomitant]
     Active Substance: INSULIN GLARGINE
     Dosage: UNK
  6. VOLTAREN PATCH [DICLOFENAC SODIUM] [Concomitant]
     Dosage: UNK
  7. OZEMPIC [Concomitant]
     Active Substance: SEMAGLUTIDE
     Dosage: UNK
  8. DIBASE [Concomitant]
     Active Substance: CHOLECALCIFEROL
     Dosage: UNK
  9. APROVEL [Concomitant]
     Active Substance: IRBESARTAN
     Dosage: 75 MG, DAILY
     Dates: end: 20210306
  10. ASPIRIN CARDIO [Concomitant]
     Active Substance: ASPIRIN
     Dosage: 100 MG, DAILY
  11. NOVORAPID [Concomitant]
     Active Substance: INSULIN ASPART
     Dosage: UNK
  12. DALMADORM [Suspect]
     Active Substance: FLURAZEPAM HYDROCHLORIDE
     Indication: INSOMNIA
     Dosage: 30 MG (IN TOTAL, IN THE EVENING)
     Route: 048
     Dates: start: 20210306, end: 20210306
  13. ATACAND [Suspect]
     Active Substance: CANDESARTAN CILEXETIL
     Indication: HYPERTENSION
     Dosage: 8 MG, DAILY
     Route: 048
     Dates: start: 20210306, end: 20210307
  14. TORASEMIDE [Suspect]
     Active Substance: TORSEMIDE
     Indication: HYPERTENSION
     Dosage: 10 MG, DAILY
     Route: 048
     Dates: start: 20210306, end: 20210307
  15. ONDANSETRON [Suspect]
     Active Substance: ONDANSETRON
     Indication: NAUSEA
     Dosage: 4 MG, AS NEEDED (IN TOTAL)
     Route: 041
     Dates: start: 20210307, end: 20210307
  16. BELOC [METOPROLOL SUCCINATE] [Suspect]
     Active Substance: METOPROLOL SUCCINATE
     Indication: HYPOTENSION
     Dosage: 100 MG, DAILY (LONG TERM)
     Route: 048
  17. PARACETAMOL [Concomitant]
     Active Substance: ACETAMINOPHEN
     Dosage: 1000 MG (3 TO 4X/DAY)
  18. SYMFONA [GINKGO BILOBA ACETONE EXTRACT] [Concomitant]
     Dosage: UNK

REACTIONS (3)
  - Hypotension [Recovered/Resolved]
  - Tachycardia [Recovered/Resolved]
  - Malaise [Recovered/Resolved]

NARRATIVE: CASE EVENT DATE: 20210307
